FAERS Safety Report 6963708-X (Version None)
Quarter: 2010Q3

REPORT INFORMATION
  Report Type: 
  Country: None (occurrence: None)
  Receive Date: 20100902
  Receipt Date: 20100830
  Transmission Date: 20110219
  Serious: Yes (Hospitalization)
  Sender: FDA-Public Use
  Company Number: US-AMGEN-KDC434792

PATIENT
  Age: 64 Year
  Sex: Male
  Weight: 111 kg

DRUGS (4)
  1. PANITUMUMAB [Suspect]
     Indication: PANCREATIC CARCINOMA
     Route: 042
     Dates: start: 20100721
  2. GEMCITABINE [Suspect]
     Route: 042
     Dates: start: 20100721
  3. TARCEVA [Suspect]
     Dates: start: 20100721
  4. ARIXTRA [Suspect]
     Route: 058

REACTIONS (3)
  - DEEP VEIN THROMBOSIS [None]
  - HAEMOGLOBIN DECREASED [None]
  - UPPER GASTROINTESTINAL HAEMORRHAGE [None]
